FAERS Safety Report 7526510-6 (Version None)
Quarter: 2011Q2

REPORT INFORMATION
  Report Type: 
  Country: None (occurrence: None)
  Receive Date: 20110606
  Receipt Date: 20110603
  Transmission Date: 20111010
  Serious: Yes (Disabling, Other)
  Sender: FDA-Public Use
  Company Number: US-PFIZER INC-2011121191

PATIENT
  Sex: Female
  Weight: 72.562 kg

DRUGS (1)
  1. EFFEXOR [Suspect]
     Indication: DEPRESSION
     Dosage: UNK
     Dates: start: 20100101, end: 20110601

REACTIONS (3)
  - GAIT DISTURBANCE [None]
  - VERTIGO [None]
  - DIZZINESS [None]
